FAERS Safety Report 6183248-8 (Version None)
Quarter: 2009Q2

REPORT INFORMATION
  Report Type: 
  Country: None (occurrence: None)
  Receive Date: 20090507
  Receipt Date: 20090429
  Transmission Date: 20091009
  Serious: Yes (Other)
  Sender: FDA-Public Use
  Company Number: US-AMGEN-QUU344980

PATIENT
  Sex: Male

DRUGS (12)
  1. ARANESP [Suspect]
     Indication: DRUG USE FOR UNKNOWN INDICATION
     Route: 065
  2. PROCRIT [Suspect]
     Indication: DRUG USE FOR UNKNOWN INDICATION
     Route: 065
  3. VITAMIN B-12 [Concomitant]
  4. VITAMIN K [Concomitant]
  5. DIFLUCAN [Concomitant]
  6. DECADRON [Concomitant]
  7. ANDROGEL [Concomitant]
  8. GLUTAMIC ACID [Concomitant]
  9. KETOCONAZOLE [Concomitant]
  10. REVLIMID [Concomitant]
  11. FOLIC ACID [Concomitant]
  12. DEXAMETHASONE 4MG TAB [Concomitant]

REACTIONS (2)
  - DRUG INEFFECTIVE [None]
  - RETICULOCYTE COUNT DECREASED [None]
